FAERS Safety Report 19206030 (Version 1)
Quarter: 2021Q2

REPORT INFORMATION
  Report Type: Spontaneous
  Country: US (occurrence: US)
  Receive Date: 20210503
  Receipt Date: 20210503
  Transmission Date: 20210717
  Serious: Yes (Other)
  Sender: FDA-Public Use
  Company Number: None

PATIENT
  Age: 37 Year
  Sex: Female
  Weight: 74.25 kg

DRUGS (4)
  1. VITAMIN B12 [Concomitant]
     Active Substance: CYANOCOBALAMIN
  2. LOW DOSE BIRTH CONTROL LOOVERAL [Concomitant]
  3. VITAMIN C [Concomitant]
     Active Substance: ASCORBIC ACID
  4. EQUATE COOL AND HEAT PAIN RELIEVING LIQUID [Suspect]
     Active Substance: MENTHOL
     Indication: MUSCLE STRAIN
     Dosage: ?          OTHER STRENGTH:COVER AFFECTED ARE;QUANTITY:1 COVER AFFECTED ARE;OTHER FREQUENCY:3?4 TIMES DAILY;?
     Route: 061
     Dates: start: 20210502, end: 20210502

REACTIONS (5)
  - Blister [None]
  - Pain [None]
  - Thermal burn [None]
  - Burning sensation [None]
  - Erythema [None]

NARRATIVE: CASE EVENT DATE: 20210502
